FAERS Safety Report 17083996 (Version 3)
Quarter: 2020Q3

REPORT INFORMATION
  Report Type: Spontaneous
  Country: JP (occurrence: JP)
  Receive Date: 20191127
  Receipt Date: 20200723
  Transmission Date: 20201102
  Serious: No
  Sender: FDA-Public Use
  Company Number: JP-ASTRAZENECA-2019SF68084

PATIENT
  Age: 21577 Day
  Sex: Female
  Weight: 46 kg

DRUGS (4)
  1. FERROMIA [Suspect]
     Active Substance: SODIUM FERROUS CITRATE
     Route: 048
  2. LYNPARZA [Suspect]
     Active Substance: OLAPARIB
     Indication: OVARIAN CANCER
     Route: 048
     Dates: start: 20191004, end: 20191119
  3. LYRICA [Suspect]
     Active Substance: PREGABALIN
     Route: 048
  4. METHYCOBAL [Suspect]
     Active Substance: METHYLCOBALAMIN
     Route: 048

REACTIONS (1)
  - Hepatic function abnormal [Recovered/Resolved]

NARRATIVE: CASE EVENT DATE: 20191119
